FAERS Safety Report 7864625-3 (Version None)
Quarter: 2011Q4

REPORT INFORMATION
  Report Type: 
  Country: None (occurrence: None)
  Receive Date: 20111028
  Receipt Date: 20111020
  Transmission Date: 20120403
  Serious: Yes (Other)
  Sender: FDA-Public Use
  Company Number: US-B.I. PHARMACEUTICALS,INC./RIDGEFIELD-2011-BP-02458BP

PATIENT
  Age: 89 Year
  Sex: Male

DRUGS (5)
  1. COREG [Concomitant]
     Indication: HYPERTENSION
  2. ASPIRIN [Concomitant]
     Indication: CARDIAC DISORDER
  3. NORVASC [Concomitant]
     Indication: HYPERTENSION
  4. PLAVIX [Concomitant]
     Indication: CARDIAC DISORDER
  5. MICARDIS HCT [Suspect]
     Indication: HYPERTENSION
     Dosage: 40MG TELMISARTAN/12.5MG HCTZ
     Route: 048
     Dates: start: 20110125

REACTIONS (1)
  - HYPERTENSION [None]
